FAERS Safety Report 13487546 (Version 1)
Quarter: 2017Q2

REPORT INFORMATION
  Report Type: Spontaneous
  Country: US (occurrence: US)
  Receive Date: 20170426
  Receipt Date: 20170426
  Transmission Date: 20170830
  Serious: No
  Sender: FDA-Public Use
  Company Number: US-ALKERMES INC.-ALK-2016-002862

PATIENT
  Age: 54 Year
  Sex: Female

DRUGS (2)
  1. VIVITROL [Suspect]
     Active Substance: NALTREXONE
     Indication: ALCOHOLISM
     Dosage: 380 MG, QMO
     Route: 030
     Dates: start: 20160908
  2. VIVITROL [Suspect]
     Active Substance: NALTREXONE
     Indication: DRUG USE DISORDER

REACTIONS (6)
  - Viral upper respiratory tract infection [Recovered/Resolved]
  - Injection site pain [Recovered/Resolved]
  - Mass [Recovered/Resolved]
  - Injection site reaction [Recovered/Resolved]
  - Arthralgia [Recovered/Resolved]
  - Pain in extremity [Unknown]

NARRATIVE: CASE EVENT DATE: 20160916
